FAERS Safety Report 10371142 (Version 2)
Quarter: 2015Q2

REPORT INFORMATION
  Report Type: Report from Study
  Country: US (occurrence: US)
  Receive Date: 20140808
  Receipt Date: 20150410
  Transmission Date: 20150821
  Serious: Yes (Other)
  Sender: FDA-Public Use
  Company Number: US-SA-2014SA105122

PATIENT
  Age: 66 Year
  Sex: Female

DRUGS (1)
  1. LANTUS [Suspect]
     Active Substance: INSULIN GLARGINE
     Indication: DIABETES MELLITUS
     Dosage: DOSE:32 UNIT(S)
     Route: 065

REACTIONS (4)
  - Drug administration error [Unknown]
  - Lung neoplasm malignant [Unknown]
  - Hyperglycaemia [Unknown]
  - Spleen disorder [Unknown]

NARRATIVE: CASE EVENT DATE: 201009
